FAERS Safety Report 6376859-8 (Version None)
Quarter: 2009Q3

REPORT INFORMATION
  Report Type: 
  Country: None (occurrence: None)
  Receive Date: 20090925
  Receipt Date: 20090917
  Transmission Date: 20100115
  Serious: Yes (Other)
  Sender: FDA-Public Use
  Company Number: US-EISAI INC.-E3810-03155-SPO-US

PATIENT
  Sex: Female
  Weight: 65 kg

DRUGS (9)
  1. ACIPHEX [Suspect]
     Indication: GASTROOESOPHAGEAL REFLUX DISEASE
     Route: 048
     Dates: start: 20070801, end: 20090601
  2. LIPITOR [Concomitant]
  3. CALCITONIN [Concomitant]
  4. PIAQUERIL [Concomitant]
  5. NORVASC [Concomitant]
  6. AVAPRO [Concomitant]
  7. BENAZEPRIL HYDROCHLORIDE [Concomitant]
  8. HYDRALAZINE HCL [Concomitant]
  9. FUROSEMIDE [Concomitant]

REACTIONS (3)
  - RENAL DISORDER [None]
  - SARCOIDOSIS [None]
  - TUBULOINTERSTITIAL NEPHRITIS [None]
